FAERS Safety Report 6686205-8 (Version None)
Quarter: 2010Q2

REPORT INFORMATION
  Report Type: 
  Country: None (occurrence: None)
  Receive Date: 20100415
  Receipt Date: 20100415
  Transmission Date: 20101027
  Serious: Yes (Other)
  Sender: FDA-Public Use
  Company Number: None

PATIENT
  Sex: Female
  Weight: 57.1532 kg

DRUGS (1)
  1. SPIRONOLACTONE [Suspect]
     Indication: MENIERE'S DISEASE
     Dosage: 25 MG TABLET DAILY PO
     Route: 048
     Dates: start: 20090902, end: 20100212

REACTIONS (5)
  - FATIGUE [None]
  - MUSCLE SPASMS [None]
  - MUSCLE TWITCHING [None]
  - MUSCULAR WEAKNESS [None]
  - MYALGIA [None]
